FAERS Safety Report 12835833 (Version 2)
Quarter: 2017Q2

REPORT INFORMATION
  Report Type: Report from Study
  Country: FR (occurrence: FR)
  Receive Date: 20161011
  Receipt Date: 20170428
  Transmission Date: 20170830
  Serious: Yes (Death)
  Sender: FDA-Public Use
  Company Number: FR-PFIZER INC-2016457613

PATIENT
  Age: 62 Year
  Sex: Female
  Weight: 49 kg

DRUGS (5)
  1. SPASFON /00934601/ [Concomitant]
     Active Substance: PHLOROGLUCINOL
     Dosage: 4 (UNIT NOT PROVIDED) DAILY
  2. OXYCONTIN [Concomitant]
     Active Substance: OXYCODONE HYDROCHLORIDE
     Dosage: 40 TWICE DAILY
  3. OXYNORM [Concomitant]
     Active Substance: OXYCODONE HYDROCHLORIDE
     Dosage: 10 (UNIT NOT PROVIDED) WHEN NEEDED
  4. LYRICA [Concomitant]
     Active Substance: PREGABALIN
     Indication: PAIN
     Dosage: 200 (UNIT NOT PROVIDED) TWICE DAILY
  5. PALBOCICLIB [Suspect]
     Active Substance: PALBOCICLIB
     Indication: BREAST CANCER
     Dosage: 125 MG, DAILY CYCLIC
     Route: 048
     Dates: start: 20160726, end: 20160904

REACTIONS (9)
  - Weight decreased [Unknown]
  - Drug ineffective [Unknown]
  - Fungal infection [Unknown]
  - Blood creatinine abnormal [Unknown]
  - Decreased appetite [Unknown]
  - General physical health deterioration [Unknown]
  - Death [Fatal]
  - Creatinine renal clearance abnormal [Unknown]
  - Haemoglobin abnormal [Unknown]

NARRATIVE: CASE EVENT DATE: 20160805
